FAERS Safety Report 14716165 (Version 2)
Quarter: 2018Q2

REPORT INFORMATION
  Report Type: Report from Study
  Country: US (occurrence: US)
  Receive Date: 20180404
  Receipt Date: 20180426
  Transmission Date: 20180711
  Serious: Yes (Hospitalization, Other)
  Sender: FDA-Public Use
  Company Number: US-EXELIXIS-XL18418013253

PATIENT
  Age: 61 Year
  Sex: Female
  Weight: 137 kg

DRUGS (32)
  1. PROTONIX [Concomitant]
     Active Substance: PANTOPRAZOLE SODIUM
  2. ACTOS [Concomitant]
     Active Substance: PIOGLITAZONE HYDROCHLORIDE
  3. CINNAMON. [Concomitant]
     Active Substance: CINNAMON
  4. ZOFRAN [Concomitant]
     Active Substance: ONDANSETRON HYDROCHLORIDE
  5. ELAVIL [Concomitant]
     Active Substance: AMITRIPTYLINE HYDROCHLORIDE
  6. VALTREX [Concomitant]
     Active Substance: VALACYCLOVIR HYDROCHLORIDE
  7. ZOMETA [Concomitant]
     Active Substance: ZOLEDRONIC ACID
  8. TYLENOL [Concomitant]
     Active Substance: ACETAMINOPHEN
  9. ROXICODONE [Concomitant]
     Active Substance: OXYCODONE HYDROCHLORIDE
  10. ZOCOR [Concomitant]
     Active Substance: SIMVASTATIN
  11. CATAPRES [Concomitant]
     Active Substance: CLONIDINE HYDROCHLORIDE
  12. LASIX [Concomitant]
     Active Substance: FUROSEMIDE
  13. JANUVIA [Concomitant]
     Active Substance: SITAGLIPTIN PHOSPHATE
  14. CIPROFLOXACIN. [Concomitant]
     Active Substance: CIPROFLOXACIN
  15. KENALOG [Concomitant]
     Active Substance: TRIAMCINOLONE ACETONIDE
  16. DEXAMETHASONE. [Concomitant]
     Active Substance: DEXAMETHASONE
  17. NEURONTIN [Concomitant]
     Active Substance: GABAPENTIN
  18. ASPIRIN. [Concomitant]
     Active Substance: ASPIRIN
  19. SENOKOT [Concomitant]
     Active Substance: SENNOSIDES
  20. CALCIUM CARBONATE W/COLECALCIFEROL [Concomitant]
     Active Substance: CALCIUM CARBONATE\CHOLECALCIFEROL
  21. LIDODERM [Concomitant]
     Active Substance: LIDOCAINE
  22. POLYETHYLENE GLYCOL [Concomitant]
     Active Substance: POLYETHYLENE GLYCOLS
  23. DELTASONE [Concomitant]
     Active Substance: PREDNISONE
  24. CABOZANTINIB [Suspect]
     Active Substance: CABOZANTINIB
     Indication: METASTATIC RENAL CELL CARCINOMA
     Dosage: 40 MG, UNK
     Route: 048
     Dates: start: 20180102
  25. IPILIMUMAB [Suspect]
     Active Substance: IPILIMUMAB
     Indication: METASTATIC RENAL CELL CARCINOMA
     Dosage: 135 MG, UNK
     Route: 042
     Dates: start: 20180102
  26. COMPAZINE [Concomitant]
     Active Substance: PROCHLORPERAZINE MALEATE
  27. VALIUM [Concomitant]
     Active Substance: DIAZEPAM
  28. NORCO [Concomitant]
     Active Substance: ACETAMINOPHEN\HYDROCODONE BITARTRATE
  29. AMOXIL [Concomitant]
     Active Substance: AMOXICILLIN
  30. NIVOLUMAB [Suspect]
     Active Substance: NIVOLUMAB
     Indication: METASTATIC RENAL CELL CARCINOMA
     Dosage: 405 MG, UNK
     Route: 042
     Dates: start: 20180102
  31. CALAN [Concomitant]
     Active Substance: VERAPAMIL HYDROCHLORIDE
  32. LISINOPRIL. [Concomitant]
     Active Substance: LISINOPRIL

REACTIONS (2)
  - Drug-induced liver injury [Not Recovered/Not Resolved]
  - Thrombocytopenia [Recovering/Resolving]

NARRATIVE: CASE EVENT DATE: 20180315
